FAERS Safety Report 13047787 (Version 1)
Quarter: 2016Q4

REPORT INFORMATION
  Report Type: Spontaneous
  Country: US (occurrence: US)
  Receive Date: 20161220
  Receipt Date: 20161220
  Transmission Date: 20170207
  Serious: Yes (Hospitalization, Other)
  Sender: FDA-Public Use
  Company Number: US-BAUSCH-BL-2016-031663

PATIENT
  Age: 16 Year
  Sex: Female

DRUGS (10)
  1. FLUOXETINE [Suspect]
     Active Substance: FLUOXETINE HYDROCHLORIDE
     Indication: PRODUCT USED FOR UNKNOWN INDICATION
     Route: 065
  2. BENZTROPINE MESYLATE. [Suspect]
     Active Substance: BENZTROPINE MESYLATE
     Indication: PRODUCT USED FOR UNKNOWN INDICATION
     Route: 065
  3. CHLOROQUINE. [Suspect]
     Active Substance: CHLOROQUINE
     Indication: MALARIA PROPHYLAXIS
     Route: 065
  4. AZITHROMYCIN ANHYDROUS. [Concomitant]
     Active Substance: AZITHROMYCIN ANHYDROUS
     Indication: PNEUMONIA MYCOPLASMAL
  5. OLANZAPINE. [Suspect]
     Active Substance: OLANZAPINE
     Route: 065
  6. RISPERIDONE. [Suspect]
     Active Substance: RISPERIDONE
     Indication: PRODUCT USED FOR UNKNOWN INDICATION
     Route: 065
  7. CLONAZEPAM. [Interacting]
     Active Substance: CLONAZEPAM
     Indication: PRODUCT USED FOR UNKNOWN INDICATION
     Route: 065
  8. OLANZAPINE. [Suspect]
     Active Substance: OLANZAPINE
     Indication: PRODUCT USED FOR UNKNOWN INDICATION
     Route: 065
  9. LORAZEPAM. [Suspect]
     Active Substance: LORAZEPAM
     Indication: ANXIETY
     Route: 065
  10. DIPHENHYDRAMINE. [Suspect]
     Active Substance: DIPHENHYDRAMINE
     Indication: PRODUCT USED FOR UNKNOWN INDICATION
     Route: 065

REACTIONS (12)
  - Toxicity to various agents [Recovering/Resolving]
  - Facial paralysis [Recovering/Resolving]
  - Amaurosis [Recovering/Resolving]
  - Anxiety [Recovering/Resolving]
  - Condition aggravated [Recovering/Resolving]
  - Areflexia [Recovering/Resolving]
  - Mydriasis [Recovering/Resolving]
  - Hallucination [Recovering/Resolving]
  - Drug interaction [Recovering/Resolving]
  - Toxic encephalopathy [Recovering/Resolving]
  - Paranoia [Recovering/Resolving]
  - Insomnia [Recovering/Resolving]
